FAERS Safety Report 22534289 (Version 1)
Quarter: 2023Q2

REPORT INFORMATION
  Report Type: Report from Study
  Country: ZA (occurrence: ZA)
  Receive Date: 20230608
  Receipt Date: 20230608
  Transmission Date: 20230721
  Serious: Yes (Hospitalization)
  Sender: FDA-Public Use
  Company Number: ZA-ABBVIE-5279175

PATIENT
  Age: 41 Year
  Sex: Male

DRUGS (3)
  1. OZURDEX [Suspect]
     Active Substance: DEXAMETHASONE
     Indication: Diabetic retinopathy
     Dosage: TIME INTERVAL: AS NECESSARY: FREQUENCY WAS EVERY 4 TO 6 MONTHS
     Route: 031
     Dates: start: 20220124, end: 20220124
  2. OZURDEX [Suspect]
     Active Substance: DEXAMETHASONE
     Indication: Diabetic retinal oedema
  3. AVASTIN [Concomitant]
     Active Substance: BEVACIZUMAB
     Indication: Product used for unknown indication

REACTIONS (1)
  - Vitrectomy [Unknown]

NARRATIVE: CASE EVENT DATE: 20230522
